FAERS Safety Report 6595078-3 (Version None)
Quarter: 2010Q1

REPORT INFORMATION
  Report Type: 
  Country: None (occurrence: None)
  Receive Date: 20100222
  Receipt Date: 20100217
  Transmission Date: 20100710
  Serious: Yes (Death, Hospitalization)
  Sender: FDA-Public Use
  Company Number: JP-ABBOTT-10P-087-0627174-00

PATIENT
  Sex: Male

DRUGS (4)
  1. NORVIR [Suspect]
     Indication: HIV INFECTION
     Route: 048
     Dates: end: 20100104
  2. ISENTRESS [Suspect]
     Indication: HIV INFECTION
     Route: 048
     Dates: end: 20100104
  3. PREZISTA [Suspect]
     Indication: HIV INFECTION
     Route: 048
     Dates: end: 20100104
  4. EPIVIR [Suspect]
     Indication: HIV INFECTION
     Route: 048
     Dates: end: 20100104

REACTIONS (1)
  - BRAIN STEM HAEMORRHAGE [None]
